FAERS Safety Report 24867113 (Version 1)
Quarter: 2025Q1

REPORT INFORMATION
  Report Type: Spontaneous
  Country: IN (occurrence: IN)
  Receive Date: 20250121
  Receipt Date: 20250121
  Transmission Date: 20250409
  Serious: Yes (Other)
  Sender: NOVAST LABORATORIES LTD
  Company Number: IN-NOVAST LABORATORIES INC.-2025NOV000003

PATIENT
  Age: 3 Year
  Sex: Female

DRUGS (1)
  1. TOPOTECAN [Suspect]
     Active Substance: TOPOTECAN HYDROCHLORIDE
     Indication: Congenital retinoblastoma

REACTIONS (2)
  - Subconjunctival fibrosis [Unknown]
  - Product use in unapproved indication [Unknown]
